FAERS Safety Report 17150011 (Version 6)
Quarter: 2021Q1

REPORT INFORMATION
  Report Type: Report from Study
  Country: US (occurrence: US)
  Receive Date: 20191213
  Receipt Date: 20210210
  Transmission Date: 20210419
  Serious: Yes (Hospitalization, Other)
  Sender: FDA-Public Use
  Company Number: US-ROCHE-2152578

PATIENT
  Age: 45 Year
  Sex: Female
  Weight: 76.8 kg

DRUGS (82)
  1. ATEZOLIZUMAB. [Suspect]
     Active Substance: ATEZOLIZUMAB
     Route: 042
     Dates: start: 20180717
  2. ATEZOLIZUMAB. [Suspect]
     Active Substance: ATEZOLIZUMAB
     Route: 042
     Dates: start: 20190308
  3. ATEZOLIZUMAB. [Suspect]
     Active Substance: ATEZOLIZUMAB
     Route: 042
     Dates: start: 20190530
  4. ATEZOLIZUMAB. [Suspect]
     Active Substance: ATEZOLIZUMAB
     Route: 042
     Dates: start: 20191204
  5. GLUCOSAMINE [Concomitant]
     Active Substance: GLUCOSAMINE
  6. LYRICA [Concomitant]
     Active Substance: PREGABALIN
  7. OXYBUTYNIN. [Concomitant]
     Active Substance: OXYBUTYNIN CHLORIDE
  8. IPRATROPIUM [Concomitant]
     Active Substance: IPRATROPIUM
  9. MONTELUKAST [Concomitant]
     Active Substance: MONTELUKAST SODIUM
  10. RANITIDINE. [Concomitant]
     Active Substance: RANITIDINE
  11. NAVELBINE [Concomitant]
     Active Substance: VINORELBINE TARTRATE
     Dates: start: 201501, end: 201708
  12. ATEZOLIZUMAB. [Suspect]
     Active Substance: ATEZOLIZUMAB
     Route: 042
     Dates: start: 20180305
  13. ATEZOLIZUMAB. [Suspect]
     Active Substance: ATEZOLIZUMAB
     Route: 042
     Dates: start: 20180918
  14. ATEZOLIZUMAB. [Suspect]
     Active Substance: ATEZOLIZUMAB
     Route: 042
     Dates: start: 20180124
  15. ATEZOLIZUMAB. [Suspect]
     Active Substance: ATEZOLIZUMAB
     Route: 042
     Dates: start: 20190215
  16. ATEZOLIZUMAB. [Suspect]
     Active Substance: ATEZOLIZUMAB
     Route: 042
     Dates: start: 20190329
  17. PROAIR HFA [Concomitant]
     Active Substance: ALBUTEROL SULFATE
  18. ALBUTEROL. [Concomitant]
     Active Substance: ALBUTEROL
     Indication: WHEEZING
  19. DULOXETINE. [Concomitant]
     Active Substance: DULOXETINE
  20. LORAZEPAM. [Concomitant]
     Active Substance: LORAZEPAM
  21. OLOPATADINE. [Concomitant]
     Active Substance: OLOPATADINE
  22. TRAZODONE [Concomitant]
     Active Substance: TRAZODONE HYDROCHLORIDE
  23. ATEZOLIZUMAB. [Suspect]
     Active Substance: ATEZOLIZUMAB
     Route: 042
     Dates: start: 20180328
  24. ATEZOLIZUMAB. [Suspect]
     Active Substance: ATEZOLIZUMAB
     Route: 042
     Dates: start: 20180418
  25. ATEZOLIZUMAB. [Suspect]
     Active Substance: ATEZOLIZUMAB
     Route: 042
     Dates: start: 20190215
  26. ATEZOLIZUMAB. [Suspect]
     Active Substance: ATEZOLIZUMAB
     Route: 042
     Dates: start: 20190912
  27. AMBIEN [Concomitant]
     Active Substance: ZOLPIDEM TARTRATE
  28. OXYGEN. [Concomitant]
     Active Substance: OXYGEN
  29. ALPRAZOLAM. [Concomitant]
     Active Substance: ALPRAZOLAM
  30. BETAMETHASONE. [Concomitant]
     Active Substance: BETAMETHASONE
  31. CHOLECALCIFEROL [Concomitant]
     Active Substance: CHOLECALCIFEROL
  32. ESZOPICLONE. [Concomitant]
     Active Substance: ESZOPICLONE
  33. HYDROCORTISONE. [Concomitant]
     Active Substance: HYDROCORTISONE
  34. SUNITINIB [Concomitant]
     Active Substance: SUNITINIB
  35. CYTOXAN [Concomitant]
     Active Substance: CYCLOPHOSPHAMIDE
     Dates: start: 201501, end: 201708
  36. ATEZOLIZUMAB. [Suspect]
     Active Substance: ATEZOLIZUMAB
     Route: 042
     Dates: start: 20180209
  37. ATEZOLIZUMAB. [Suspect]
     Active Substance: ATEZOLIZUMAB
     Route: 042
     Dates: start: 20180529
  38. ATEZOLIZUMAB. [Suspect]
     Active Substance: ATEZOLIZUMAB
     Route: 042
     Dates: start: 20181009
  39. ATEZOLIZUMAB. [Suspect]
     Active Substance: ATEZOLIZUMAB
     Route: 042
     Dates: start: 20181030
  40. ATEZOLIZUMAB. [Suspect]
     Active Substance: ATEZOLIZUMAB
     Route: 042
     Dates: start: 20181129
  41. ATEZOLIZUMAB. [Suspect]
     Active Substance: ATEZOLIZUMAB
     Route: 042
     Dates: start: 20200416
  42. FEXOFENADINE [Concomitant]
     Active Substance: FEXOFENADINE HYDROCHLORIDE
  43. GEMFIBROZIL. [Concomitant]
     Active Substance: GEMFIBROZIL
  44. PILOCARPINE. [Concomitant]
     Active Substance: PILOCARPINE
  45. ATEZOLIZUMAB. [Suspect]
     Active Substance: ATEZOLIZUMAB
     Route: 042
     Dates: start: 20180124
  46. ATEZOLIZUMAB. [Suspect]
     Active Substance: ATEZOLIZUMAB
     Route: 042
     Dates: start: 20180510
  47. ATEZOLIZUMAB. [Suspect]
     Active Substance: ATEZOLIZUMAB
     Route: 042
     Dates: start: 20180625
  48. AMITIZA [Concomitant]
     Active Substance: LUBIPROSTONE
  49. FLUTICASONE. [Concomitant]
     Active Substance: FLUTICASONE
  50. FORMOTEROL [Concomitant]
     Active Substance: FORMOTEROL
  51. ADRIAMYCIN [Concomitant]
     Active Substance: DOXORUBICIN HYDROCHLORIDE
     Dates: start: 201501, end: 201708
  52. GEMCITABINE. [Concomitant]
     Active Substance: GEMCITABINE
     Dates: start: 201501, end: 201508
  53. ATEZOLIZUMAB. [Suspect]
     Active Substance: ATEZOLIZUMAB
     Indication: ALVEOLAR SOFT PART SARCOMA
     Dosage: PATIENTS RECEIVE ATEZOLIZUMAB IV OVER 60 MINUTES ON DAY 1. COURSES REPEAT EVERY 21 DAYS IN THE ABSEN
     Route: 042
     Dates: start: 20171211
  54. ATEZOLIZUMAB. [Suspect]
     Active Substance: ATEZOLIZUMAB
     Route: 042
     Dates: start: 20180828
  55. ATEZOLIZUMAB. [Suspect]
     Active Substance: ATEZOLIZUMAB
     Route: 042
     Dates: start: 20180104
  56. ATEZOLIZUMAB. [Suspect]
     Active Substance: ATEZOLIZUMAB
     Route: 042
     Dates: start: 20200305
  57. ATENOLOL. [Concomitant]
     Active Substance: ATENOLOL
  58. OXYCODONE [Concomitant]
     Active Substance: OXYCODONE
  59. CYCLOBENZAPRINE. [Concomitant]
     Active Substance: CYCLOBENZAPRINE
  60. DOXEPIN [Concomitant]
     Active Substance: DOXEPIN
  61. LIDOCAINE. [Concomitant]
     Active Substance: LIDOCAINE
  62. PREGABALIN. [Concomitant]
     Active Substance: PREGABALIN
  63. TORSEMIDE. [Concomitant]
     Active Substance: TORSEMIDE
  64. VINCRISTINE [Concomitant]
     Active Substance: VINCRISTINE
     Dates: start: 201501, end: 201708
  65. PREDNISONE. [Concomitant]
     Active Substance: PREDNISONE
     Route: 048
  66. ATEZOLIZUMAB. [Suspect]
     Active Substance: ATEZOLIZUMAB
     Route: 042
     Dates: start: 20180807
  67. ATEZOLIZUMAB. [Suspect]
     Active Substance: ATEZOLIZUMAB
     Route: 042
     Dates: start: 20190308
  68. CYMBALTA [Concomitant]
     Active Substance: DULOXETINE HYDROCHLORIDE
  69. AZELASTINE. [Concomitant]
     Active Substance: AZELASTINE HYDROCHLORIDE
  70. MOMETASONE [Concomitant]
     Active Substance: MOMETASONE
  71. TEMOZOLOMIDE. [Concomitant]
     Active Substance: TEMOZOLOMIDE
     Dates: start: 201501, end: 201708
  72. PROPOFOL. [Concomitant]
     Active Substance: PROPOFOL
  73. ATEZOLIZUMAB. [Suspect]
     Active Substance: ATEZOLIZUMAB
     Route: 042
     Dates: start: 20180103
  74. ATEZOLIZUMAB. [Suspect]
     Active Substance: ATEZOLIZUMAB
     Route: 042
     Dates: start: 20200416
  75. ADVIL [Concomitant]
     Active Substance: IBUPROFEN
  76. ACETAMINOPHEN. [Concomitant]
     Active Substance: ACETAMINOPHEN
  77. LUBIPROSTONE [Concomitant]
     Active Substance: LUBIPROSTONE
  78. BUDESONIDE;FORMOTEROL [Concomitant]
     Active Substance: BUDESONIDE\FORMOTEROL
  79. METOPROLOL. [Concomitant]
     Active Substance: METOPROLOL
  80. SENNOSIDE [Concomitant]
     Active Substance: SENNOSIDES
  81. CISPLATIN. [Concomitant]
     Active Substance: CISPLATIN
     Dates: start: 201501, end: 201708
  82. ZOMETA [Concomitant]
     Active Substance: ZOLEDRONIC ACID
     Dates: start: 201501, end: 201508

REACTIONS (14)
  - Hypoxia [Unknown]
  - Hypertension [Unknown]
  - Mental status changes [Unknown]
  - Anaemia [Unknown]
  - Activated partial thromboplastin time prolonged [Unknown]
  - Infection [Unknown]
  - Pneumonia [Unknown]
  - Cerebrovascular accident [Recovered/Resolved]
  - Somnolence [Unknown]
  - Sepsis [Recovered/Resolved]
  - Urinary tract infection [Unknown]
  - Cerebrovascular accident [Recovered/Resolved]
  - Anxiety [Unknown]
  - Pneumonitis [Unknown]

NARRATIVE: CASE EVENT DATE: 20171225
